FAERS Safety Report 8918565 (Version 1)
Quarter: 2012Q4

REPORT INFORMATION
  Report Type: 
  Country: ES (occurrence: ES)
  Receive Date: 20121120
  Receipt Date: 20121120
  Transmission Date: 20130627
  Serious: No
  Sender: FDA-Public Use
  Company Number: ES-ABBOTT-12P-144-1009587-00

PATIENT
  Age: 41 Year
  Sex: Male

DRUGS (2)
  1. DEPAKINE [Suspect]
     Indication: MIGRAINE
     Dosage: 300 mg daily
     Route: 048
     Dates: start: 20121103
  2. ATROVENT [Suspect]
     Indication: PRODUCT USED FOR UNKNOWN INDICATION
     Dates: start: 201210, end: 20121114

REACTIONS (1)
  - Gastrointestinal disorder [Not Recovered/Not Resolved]
